FAERS Safety Report 24439945 (Version 1)
Quarter: 2024Q4

REPORT INFORMATION
  Report Type: Spontaneous
  Country: BR (occurrence: BR)
  Receive Date: 20241015
  Receipt Date: 20241015
  Transmission Date: 20250114
  Serious: Yes (Other)
  Sender: BEIGENE
  Company Number: BR-BEIGENE-BGN-2024-016142

PATIENT

DRUGS (1)
  1. BRUKINSA [Suspect]
     Active Substance: ZANUBRUTINIB
     Indication: Marginal zone lymphoma

REACTIONS (1)
  - Cardiac failure [Unknown]
